FAERS Safety Report 8342179 (Version 5)
Quarter: 2012Q4

REPORT INFORMATION
  Report Type: 
  Country: US (occurrence: US)
  Receive Date: 20120118
  Receipt Date: 20121019
  Transmission Date: 20130627
  Serious: Yes (Other)
  Sender: FDA-Public Use
  Company Number: US-PFIZER INC-2012010967

PATIENT
  Age: 54 Year
  Sex: Female
  Weight: 64.4 kg

DRUGS (12)
  1. NEURONTIN [Suspect]
     Indication: MUSCLE SPASMS
     Dosage: 300 mg, 3x/day
     Route: 048
     Dates: start: 201104
  2. NEURONTIN [Suspect]
     Indication: HEADACHE
  3. NEURONTIN [Suspect]
     Indication: FIBROMYALGIA
  4. PREMARIN [Suspect]
     Dosage: UNK
  5. PRAVACHOL [Concomitant]
     Dosage: 40 mg, UNK
  6. LOPRESSOR [Concomitant]
     Dosage: 100 mg, UNK
  7. HYDROCHLOROTHIAZIDE [Concomitant]
     Dosage: 25 mg, UNK
  8. SYNTHROID [Concomitant]
     Dosage: 0.25 ug, UNK
  9. ACETYLSALICYLIC ACID [Concomitant]
     Dosage: 81 mg, UNK
  10. LORTAB [Concomitant]
     Indication: HEADACHE
     Dosage: 7.5/500 mg, UNK
  11. ZOLOFT [Concomitant]
     Dosage: UNK
  12. OMEGA 3 PLUS D3 FISH OIL [Concomitant]
     Dosage: UNK, 2x/day

REACTIONS (14)
  - Breast cancer [Recovering/Resolving]
  - Syncope [Unknown]
  - Memory impairment [Not Recovered/Not Resolved]
  - Rheumatoid arthritis [Unknown]
  - Monoplegia [Unknown]
  - Alopecia [Not Recovered/Not Resolved]
  - Oedema [Unknown]
  - Hypoaesthesia [Unknown]
  - Pain in extremity [Not Recovered/Not Resolved]
  - Insomnia [Unknown]
  - Stress [Unknown]
  - Anxiety [Unknown]
  - Pain [Unknown]
  - Headache [Unknown]
